FAERS Safety Report 24838937 (Version 1)
Quarter: 2025Q1

REPORT INFORMATION
  Report Type: Spontaneous
  Country: US (occurrence: US)
  Receive Date: 20250114
  Receipt Date: 20250114
  Transmission Date: 20250409
  Serious: No
  Sender: ROCHE
  Company Number: US-ROCHE-10000174280

PATIENT
  Age: 26 Year
  Sex: Male

DRUGS (1)
  1. XOLAIR [Suspect]
     Active Substance: OMALIZUMAB
     Indication: Urticaria
     Dosage: STRENGTH: 150 MG/ML
     Route: 058
     Dates: start: 20250106

REACTIONS (4)
  - Underdose [Unknown]
  - Device malfunction [Unknown]
  - No adverse event [Unknown]
  - Device issue [Unknown]

NARRATIVE: CASE EVENT DATE: 20250106
